FAERS Safety Report 24858995 (Version 1)
Quarter: 2025Q1

REPORT INFORMATION
  Report Type: Spontaneous
  Country: CN (occurrence: CN)
  Receive Date: 20250118
  Receipt Date: 20250118
  Transmission Date: 20250409
  Serious: Yes (Life-Threatening, Other)
  Sender: ABBVIE
  Company Number: CN-ABBVIE-6090284

PATIENT
  Age: 68 Year
  Sex: Male

DRUGS (3)
  1. VENETOCLAX [Suspect]
     Active Substance: VENETOCLAX
     Indication: Mantle cell lymphoma
     Dosage: 50 MILLIGRAM
     Route: 048
     Dates: start: 20250107, end: 20250107
  2. RITUXIMAB [Suspect]
     Active Substance: RITUXIMAB
     Indication: Mantle cell lymphoma
     Dosage: 100 MILLIGRAM
     Route: 041
     Dates: start: 20250107, end: 20250107
  3. TRISODIUM CITRATE DIHYDRATE [Concomitant]
     Active Substance: TRISODIUM CITRATE DIHYDRATE
     Indication: Anticoagulant therapy

REACTIONS (16)
  - Acute kidney injury [Recovering/Resolving]
  - Mantle cell lymphoma [Unknown]
  - Infection [Unknown]
  - Abdominal tenderness [Unknown]
  - Tumour lysis syndrome [Recovering/Resolving]
  - Electrolyte imbalance [Recovered/Resolved]
  - Abdominal distension [Not Recovered/Not Resolved]
  - Asthma [Unknown]
  - Spleen palpable [Unknown]
  - Temperature intolerance [Recovering/Resolving]
  - Oxygen saturation decreased [Unknown]
  - Respiratory rate increased [Unknown]
  - Heart rate abnormal [Unknown]
  - Blood pressure increased [Unknown]
  - Discomfort [Recovering/Resolving]
  - Body temperature increased [Unknown]

NARRATIVE: CASE EVENT DATE: 20250101
